FAERS Safety Report 5203365-6 (Version None)
Quarter: 2007Q1

REPORT INFORMATION
  Report Type: 
  Country: None (occurrence: None)
  Receive Date: 20070105
  Receipt Date: 20061229
  Transmission Date: 20070707
  Serious: Yes (Death)
  Sender: FDA-Public Use
  Company Number: 150476ISR

PATIENT
  Age: 58 Year
  Sex: Male

DRUGS (1)
  1. COPAXONE [Suspect]
     Indication: MULTIPLE SCLEROSIS
     Dosage: 20 MG (20 MG,1 IN 1 D)
     Route: 058
     Dates: start: 20060126, end: 20061130

REACTIONS (2)
  - BRONCHIAL CARCINOMA [None]
  - LUNG NEOPLASM MALIGNANT [None]
